FAERS Safety Report 6266879-6 (Version None)
Quarter: 2009Q3

REPORT INFORMATION
  Report Type: 
  Country: None (occurrence: None)
  Receive Date: 20090714
  Receipt Date: 20090708
  Transmission Date: 20100115
  Serious: Yes (Other)
  Sender: FDA-Public Use
  Company Number: US-ASTRAZENECA-2009UW13462

PATIENT
  Age: 50 Year
  Sex: Female
  Weight: 122.5 kg

DRUGS (2)
  1. SEROQUEL [Suspect]
     Indication: DEPRESSION
     Dosage: 50 MG TO 600 MG
     Route: 048
     Dates: start: 20060501
  2. RISPERDAL [Concomitant]
     Dates: start: 19981201

REACTIONS (9)
  - ARTHROPATHY [None]
  - BUNION [None]
  - HAND DEFORMITY [None]
  - INFECTION [None]
  - KNEE ARTHROPLASTY [None]
  - LIMB OPERATION [None]
  - MULTIPLE INJURIES [None]
  - POST PROCEDURAL INFECTION [None]
  - TYPE 2 DIABETES MELLITUS [None]
